FAERS Safety Report 8967799 (Version 1)
Quarter: 2012Q4

REPORT INFORMATION
  Report Type: 
  Country: JP (occurrence: JP)
  Receive Date: 20121218
  Receipt Date: 20121218
  Transmission Date: 20130627
  Serious: Yes (Other)
  Sender: FDA-Public Use
  Company Number: PHHY2012JP115486

PATIENT

DRUGS (1)
  1. EXELON PATCH [Suspect]
     Route: 062

REACTIONS (1)
  - Sinus arrest [Unknown]
